FAERS Safety Report 10409144 (Version 5)
Quarter: 2015Q1

REPORT INFORMATION
  Report Type: Report from Study
  Country: TR (occurrence: TR)
  Receive Date: 20140826
  Receipt Date: 20150115
  Transmission Date: 20150720
  Serious: Yes (Other)
  Sender: FDA-Public Use
  Company Number: PHHY2014TR104761

PATIENT
  Age: 12 Year
  Sex: Male
  Weight: 32 kg

DRUGS (5)
  1. ICL670A [Suspect]
     Active Substance: DEFERASIROX
     Dosage: 28 MG/KG, QD
     Route: 048
  2. ICL670A [Suspect]
     Active Substance: DEFERASIROX
     Indication: THALASSAEMIA BETA
     Dosage: 39 MG/KG, QD
     Route: 048
     Dates: start: 201102
  3. ICL670A [Suspect]
     Active Substance: DEFERASIROX
     Dosage: UNK
     Route: 048
     Dates: start: 20130606
  4. ICL670A [Suspect]
     Active Substance: DEFERASIROX
     Dosage: 33 MG
     Route: 048
     Dates: start: 20130424, end: 20130606
  5. ICL670A [Suspect]
     Active Substance: DEFERASIROX
     Dosage: 40 MG/KG, QD
     Route: 048
     Dates: start: 20121030, end: 20130220

REACTIONS (2)
  - Hepatomegaly [Not Recovered/Not Resolved]
  - Hepatic enzyme increased [Recovered/Resolved]

NARRATIVE: CASE EVENT DATE: 20130220
